FAERS Safety Report 24323486 (Version 1)
Quarter: 2024Q3

REPORT INFORMATION
  Report Type: Spontaneous
  Country: US (occurrence: None)
  Receive Date: 20240913
  Receipt Date: 20240913
  Transmission Date: 20241016
  Serious: No
  Sender: Public
  Company Number: None

PATIENT
  Age: 54 Year
  Sex: Female
  Weight: 65.25 kg

DRUGS (2)
  1. NASACORT ALLERGY 24HR [Suspect]
     Active Substance: TRIAMCINOLONE ACETONIDE
     Indication: Hypersensitivity
     Dates: start: 20240320
  2. Sudafed/Pseudoephedrine HCI [Concomitant]

REACTIONS (3)
  - Breast swelling [None]
  - Heavy menstrual bleeding [None]
  - Sinusitis [None]

NARRATIVE: CASE EVENT DATE: 20240329
